FAERS Safety Report 7548624-7 (Version None)
Quarter: 2011Q2

REPORT INFORMATION
  Report Type: 
  Country: None (occurrence: None)
  Receive Date: 20110608
  Receipt Date: 20110531
  Transmission Date: 20111010
  Serious: Yes (Hospitalization)
  Sender: FDA-Public Use
  Company Number: 11-000630

PATIENT
  Age: 47 Year
  Sex: Female
  Weight: 53.1 kg

DRUGS (11)
  1. SINGULAIR (MONTELUKAST SODIUM) AEROSOL (SPRAY AND INHALATION) [Concomitant]
  2. METFORMIN HCL (METFORMIN HYDROCHLORIDE) [Concomitant]
  3. ADVAIR (FLUTICASONE PROPIONATE, SALMETEROL XINAFOATE) AEROSOL (SPRAY A [Concomitant]
  4. TRAZODONE HCL [Concomitant]
  5. ESTRACE [Suspect]
     Indication: VULVOVAGINAL DRYNESS
     Dosage: 1 G, THREE TIMES WEEKLY, VAGINAL
     Route: 067
     Dates: start: 20110301
  6. ALPRAZOLAM [Concomitant]
  7. DIVIGEL [Suspect]
     Indication: HOT FLUSH
     Dosage: TOPICAL
     Route: 061
     Dates: start: 20110301
  8. DIVIGEL [Suspect]
     Indication: INSOMNIA
     Dosage: TOPICAL
     Route: 061
     Dates: start: 20110301
  9. DIVIGEL [Suspect]
     Indication: HOT FLUSH
     Dosage: TOPICAL
     Route: 061
     Dates: start: 20101001, end: 20100101
  10. DIVIGEL [Suspect]
     Indication: INSOMNIA
     Dosage: TOPICAL
     Route: 061
     Dates: start: 20101001, end: 20100101
  11. CLONAZEPAM [Concomitant]

REACTIONS (13)
  - SINUS CONGESTION [None]
  - IRRITABLE BOWEL SYNDROME [None]
  - PLEURISY [None]
  - DIARRHOEA [None]
  - PYREXIA [None]
  - PNEUMONIA [None]
  - ABDOMINAL PAIN UPPER [None]
  - HAEMORRHOIDS [None]
  - HOT FLUSH [None]
  - PAIN [None]
  - WEIGHT DECREASED [None]
  - ALOPECIA [None]
  - INSOMNIA [None]
